FAERS Safety Report 8040893-2 (Version None)
Quarter: 2012Q1

REPORT INFORMATION
  Report Type: 
  Country: None (occurrence: None)
  Receive Date: 20120112
  Receipt Date: 20120106
  Transmission Date: 20120608
  Serious: No
  Sender: FDA-Public Use
  Company Number: US-BIOGENIDEC-2011BI038210

PATIENT
  Sex: Male

DRUGS (4)
  1. AVONEX [Concomitant]
     Route: 030
     Dates: start: 20010501, end: 20110101
  2. TYSABRI [Suspect]
     Indication: MULTIPLE SCLEROSIS
     Route: 042
     Dates: start: 20110922
  3. AVONEX [Concomitant]
     Indication: MULTIPLE SCLEROSIS
     Route: 030
     Dates: start: 20010122
  4. AMPYRA [Concomitant]
     Indication: MOBILITY DECREASED
     Dates: start: 20110101, end: 20110101

REACTIONS (5)
  - BALANCE DISORDER [None]
  - LIMB DISCOMFORT [None]
  - ASTHENIA [None]
  - MUSCULAR WEAKNESS [None]
  - MOBILITY DECREASED [None]
